FAERS Safety Report 4322156-1 (Version None)
Quarter: 2004Q1

REPORT INFORMATION
  Report Type: 
  Country: None (occurrence: None)
  Receive Date: 20040319
  Receipt Date: 20040302
  Transmission Date: 20041129
  Serious: Yes (Life-Threatening, Hospitalization)
  Sender: FDA-Public Use
  Company Number: F01200400385

PATIENT
  Age: 64 Year
  Sex: Male

DRUGS (5)
  1. OXALIPLATIN [Suspect]
     Indication: COLON CANCER
     Dosage: 250 MG Q3W
     Route: 042
     Dates: start: 20031219, end: 20031219
  2. (CAPECITABINE) - SOLUTION - 2000 MG [Suspect]
     Dosage: 2000 MG TWICE A DAY (Q3W)
     Dates: start: 20031201
  3. LORAZEPAM [Concomitant]
  4. METFORMIN HYDROCHLORIDE (METFORMIN HCL) [Concomitant]
  5. INSULIN MIXTARD (INSULIN INJECTION, ISOPHANE) [Concomitant]

REACTIONS (3)
  - DUODENAL ULCER HAEMORRHAGE [None]
  - GASTROINTESTINAL NECROSIS [None]
  - MUCOUS MEMBRANE DISORDER [None]
